FAERS Safety Report 7253459-9 (Version None)
Quarter: 2011Q1

REPORT INFORMATION
  Report Type: 
  Country: None (occurrence: None)
  Receive Date: 20110129
  Receipt Date: 20100310
  Transmission Date: 20110831
  Serious: No
  Sender: FDA-Public Use
  Company Number: US-ABBOTT-10P-163-0626791-00

PATIENT
  Sex: Male
  Weight: 83.99 kg

DRUGS (2)
  1. HUMIRA [Suspect]
     Indication: PSORIATIC ARTHROPATHY
     Route: 058
     Dates: start: 20090422, end: 20091001
  2. HUMIRA [Suspect]
     Indication: PSORIASIS
     Route: 058
     Dates: start: 20091001

REACTIONS (13)
  - ERYTHEMA [None]
  - MUSCULOSKELETAL STIFFNESS [None]
  - INJECTION SITE NODULE [None]
  - TREATMENT NONCOMPLIANCE [None]
  - BACK PAIN [None]
  - INJECTION SITE ERYTHEMA [None]
  - SKIN EXFOLIATION [None]
  - OEDEMA PERIPHERAL [None]
  - PAIN IN EXTREMITY [None]
  - PAIN [None]
  - PSORIASIS [None]
  - EAR PAIN [None]
  - INJECTION SITE PRURITUS [None]
